FAERS Safety Report 13731500 (Version 1)
Quarter: 2017Q3

REPORT INFORMATION
  Report Type: Spontaneous
  Country: US (occurrence: US)
  Receive Date: 20170707
  Receipt Date: 20170707
  Transmission Date: 20171127
  Serious: Yes (Other)
  Sender: FDA-Public Use
  Company Number: US-BRISTOL-MYERS SQUIBB COMPANY-BMS-2017-059128

PATIENT
  Sex: Female
  Weight: 74.83 kg

DRUGS (1)
  1. ELIQUIS [Suspect]
     Active Substance: APIXABAN
     Indication: CEREBROVASCULAR ACCIDENT PROPHYLAXIS
     Dosage: 5 MG, QD
     Route: 048

REACTIONS (8)
  - Fall [Unknown]
  - Off label use [Unknown]
  - Epistaxis [Recovered/Resolved]
  - Cancer surgery [Unknown]
  - Cough [Unknown]
  - Skin cancer [Unknown]
  - Intentional self-injury [Unknown]
  - Haemorrhage [Unknown]
